FAERS Safety Report 5632904-6 (Version None)
Quarter: 2008Q1

REPORT INFORMATION
  Report Type: 
  Country: None (occurrence: None)
  Receive Date: 20080221
  Receipt Date: 20080208
  Transmission Date: 20080703
  Serious: Yes (Hospitalization)
  Sender: FDA-Public Use
  Company Number: US-AMGEN-KDL252173

PATIENT
  Sex: Female

DRUGS (11)
  1. ENBREL [Suspect]
     Indication: RHEUMATOID ARTHRITIS
     Route: 058
     Dates: start: 20040801
  2. METHOTREXATE [Concomitant]
     Route: 065
     Dates: end: 20040101
  3. PLAQUENIL [Concomitant]
     Route: 065
     Dates: start: 20071001, end: 20071001
  4. HUMIRA [Concomitant]
     Route: 065
     Dates: start: 20050801, end: 20050901
  5. FLONASE [Concomitant]
     Route: 065
  6. CLARITIN [Concomitant]
     Route: 065
  7. PEPCID [Concomitant]
     Route: 065
  8. ADVAIR DISKUS 100/50 [Concomitant]
     Route: 065
  9. FOLIC ACID [Concomitant]
     Route: 065
  10. VITAMIN TAB [Concomitant]
     Route: 065
  11. LOVENOX [Concomitant]
     Route: 058

REACTIONS (5)
  - ECLAMPSIA [None]
  - LYMPHOCYTE COUNT INCREASED [None]
  - PREMATURE LABOUR [None]
  - RHEUMATOID ARTHRITIS [None]
  - VOMITING IN PREGNANCY [None]
